FAERS Safety Report 4382358-5 (Version None)
Quarter: 2004Q2

REPORT INFORMATION
  Report Type: 
  Country: None (occurrence: None)
  Receive Date: 20040622
  Receipt Date: 20020820
  Transmission Date: 20050107
  Serious: Yes (Hospitalization)
  Sender: FDA-Public Use
  Company Number: PHBS2002AU09991

PATIENT
  Age: 38 Year
  Sex: Male

DRUGS (7)
  1. CLOZARIL [Suspect]
     Dosage: 400 MG/D
     Route: 048
     Dates: start: 19990203, end: 20040610
  2. GLIMEPIRIDE [Concomitant]
     Dosage: 5 MG, MANE
     Route: 065
     Dates: end: 20020814
  3. PETHIDINE [Concomitant]
  4. VALPROIC ACID [Concomitant]
     Dosage: 1200 MG, BID
  5. DITROPAN [Concomitant]
     Dosage: 5 MG, BID
  6. AVANDIA [Concomitant]
     Dosage: 4 MG, MANE
     Dates: end: 20020814
  7. GEMFIBROZIL [Concomitant]
     Dosage: 60 MG, BID

REACTIONS (7)
  - ABDOMINAL PAIN UPPER [None]
  - BLOOD GLUCOSE DECREASED [None]
  - HEPATIC STEATOSIS [None]
  - INFLUENZA LIKE ILLNESS [None]
  - LIPASE INCREASED [None]
  - PANCREATITIS [None]
  - SOMNOLENCE [None]
